FAERS Safety Report 7687955-7 (Version None)
Quarter: 2011Q3

REPORT INFORMATION
  Report Type: 
  Country: None (occurrence: None)
  Receive Date: 20110817
  Receipt Date: 20110804
  Transmission Date: 20111222
  Serious: Yes (Hospitalization)
  Sender: FDA-Public Use
  Company Number: NL-ELI_LILLY_AND_COMPANY-NL201108002411

PATIENT
  Sex: Female
  Weight: 60 kg

DRUGS (7)
  1. CODEINE PHOSPHATE AND ACETAMINOPHEN [Concomitant]
     Indication: PAIN
     Dosage: UNK, PRN
     Dates: start: 20110531
  2. CAD [Concomitant]
     Indication: OSTEOPOROSIS
     Dosage: 1 DF, QD
     Route: 048
     Dates: end: 20110530
  3. FORTEO [Suspect]
     Indication: OSTEOPOROSIS
     Dosage: 20 UG, QD
     Route: 058
     Dates: start: 20110221, end: 20110529
  4. OXYCODONE HCL [Concomitant]
     Indication: PAIN
     Dosage: UNK, PRN
     Route: 048
     Dates: end: 20110530
  5. PANTOPRAZOLE [Concomitant]
     Indication: PROPHYLAXIS
     Dosage: 20 MG, QD
     Route: 048
     Dates: start: 20110711
  6. URSODIOL [Concomitant]
     Indication: BILIARY TRACT DISORDER
     Dosage: 300 MG, BID
     Route: 048
     Dates: start: 20020101
  7. ALENDRONIC ACID [Concomitant]
     Indication: OSTEOPOROSIS
     Dosage: 70 MG, QD
     Route: 048
     Dates: start: 20110711

REACTIONS (8)
  - VOMITING [None]
  - DIZZINESS [None]
  - HEADACHE [None]
  - BLOOD CALCIUM INCREASED [None]
  - NAUSEA [None]
  - DIPLOPIA [None]
  - CONFUSIONAL STATE [None]
  - EYE PAIN [None]
